FAERS Safety Report 19591212 (Version 1)
Quarter: 2021Q3

REPORT INFORMATION
  Report Type: Spontaneous
  Country: US (occurrence: US)
  Receive Date: 20210722
  Receipt Date: 20210722
  Transmission Date: 20211014
  Serious: No
  Sender: FDA-Public Use
  Company Number: US-CIPLA LTD.-2021US04704

PATIENT

DRUGS (1)
  1. PREGABALIN. [Suspect]
     Active Substance: PREGABALIN
     Indication: AUTONOMIC NERVOUS SYSTEM IMBALANCE
     Dosage: UNK, BID
     Route: 065
     Dates: start: 202106

REACTIONS (10)
  - Drug ineffective for unapproved indication [Unknown]
  - Vertigo [Unknown]
  - Product substitution issue [Unknown]
  - Tinnitus [Unknown]
  - Balance disorder [Unknown]
  - Feeling abnormal [Unknown]
  - Off label use [Unknown]
  - Dizziness [Unknown]
  - Headache [Unknown]
  - Sleep deficit [Unknown]

NARRATIVE: CASE EVENT DATE: 202106
